FAERS Safety Report 12662894 (Version 1)
Quarter: 2016Q3

REPORT INFORMATION
  Report Type: Spontaneous
  Country: US (occurrence: None)
  Receive Date: 20160817
  Receipt Date: 20160817
  Transmission Date: 20161109
  Serious: Yes (Other)
  Sender: FDA-Public Use
  Company Number: None

PATIENT
  Age: 62 Year
  Sex: Female
  Weight: 143.34 kg

DRUGS (18)
  1. MELOXICAM. [Concomitant]
     Active Substance: MELOXICAM
  2. AMLODOPINE BESYLATE (NORVASC) [Concomitant]
  3. HYDROCHLOROTHIAZIDE (HCTZ) [Concomitant]
     Active Substance: HYDROCHLOROTHIAZIDE
  4. BEPREVE [Concomitant]
     Active Substance: BEPOTASTINE BESILATE
  5. KLOR-CON [Suspect]
     Active Substance: POTASSIUM CHLORIDE
     Indication: IRON DEFICIENCY
     Route: 048
     Dates: end: 20160326
  6. METOPROLOL TARTRATE. [Concomitant]
     Active Substance: METOPROLOL TARTRATE
  7. BARACLUDE [Concomitant]
     Active Substance: ENTECAVIR
  8. MEDROXYPROGESTERONE [Concomitant]
     Active Substance: MEDROXYPROGESTERONE
  9. VITAMIN D [Concomitant]
     Active Substance: CHOLECALCIFEROL
  10. VIIBRYO [Concomitant]
  11. KLOR-CON [Suspect]
     Active Substance: POTASSIUM CHLORIDE
     Indication: ANAEMIA
     Route: 048
     Dates: end: 20160326
  12. KLOR-CON [Suspect]
     Active Substance: POTASSIUM CHLORIDE
     Indication: ASTHENIA
     Route: 048
     Dates: end: 20160326
  13. CLONODINE [Concomitant]
  14. OMEPRAZOLE. [Concomitant]
     Active Substance: OMEPRAZOLE
  15. TUMERIC [Concomitant]
     Active Substance: TURMERIC
  16. FERROUS SULFATE. [Suspect]
     Active Substance: FERROUS SULFATE
     Route: 048
  17. TOVIAZ [Concomitant]
     Active Substance: FESOTERODINE FUMARATE
  18. BEPOTASTINE BESILATE [Concomitant]
     Active Substance: BEPOTASTINE BESILATE

REACTIONS (4)
  - Nausea [None]
  - Feeling abnormal [None]
  - Dysarthria [None]
  - Asthenia [None]

NARRATIVE: CASE EVENT DATE: 20160317
